FAERS Safety Report 10501497 (Version 1)
Quarter: 2014Q4

REPORT INFORMATION
  Report Type: Spontaneous
  Country: US (occurrence: None)
  Receive Date: 20141006
  Receipt Date: 20141006
  Transmission Date: 20150528
  Serious: Yes (Hospitalization)
  Sender: FDA-Public Use
  Company Number: None

PATIENT
  Age: 77 Year
  Sex: Male
  Weight: 77.3 kg

DRUGS (2)
  1. CIPROFLOXACIN. [Suspect]
     Active Substance: CIPROFLOXACIN
     Indication: URINARY TRACT INFECTION
  2. DOXYCYCLINE. [Suspect]
     Active Substance: DOXYCYCLINE
     Indication: STAPHYLOCOCCAL INFECTION
     Route: 048
     Dates: start: 20140520, end: 20140724

REACTIONS (6)
  - Dehydration [None]
  - Rash generalised [None]
  - Orthostatic hypotension [None]
  - Drug hypersensitivity [None]
  - Rash macular [None]
  - Rash pruritic [None]

NARRATIVE: CASE EVENT DATE: 20140724
